FAERS Safety Report 25721145 (Version 1)
Quarter: 2025Q3

REPORT INFORMATION
  Report Type: Spontaneous
  Country: CN (occurrence: CN)
  Receive Date: 20250825
  Receipt Date: 20250825
  Transmission Date: 20251021
  Serious: Yes (Other)
  Sender: BAXTER
  Company Number: None

PATIENT
  Age: 55 Year
  Sex: Female
  Weight: 68 kg

DRUGS (9)
  1. CYCLOPHOSPHAMIDE [Suspect]
     Active Substance: CYCLOPHOSPHAMIDE
     Indication: HER2 low breast cancer
     Dosage: 920 MG, QD
     Route: 042
     Dates: start: 20250416, end: 20250416
  2. CYCLOPHOSPHAMIDE [Suspect]
     Active Substance: CYCLOPHOSPHAMIDE
     Indication: Hormone receptor positive breast cancer
  3. CYCLOPHOSPHAMIDE [Suspect]
     Active Substance: CYCLOPHOSPHAMIDE
     Indication: Hormone receptor positive breast cancer
  4. SODIUM CHLORIDE [Suspect]
     Active Substance: SODIUM CHLORIDE
     Dosage: 50 ML, QD (NS) (WITH CYCLOPHOSPHAMIDE)
     Route: 042
     Dates: start: 20250416, end: 20250416
  5. SODIUM CHLORIDE [Suspect]
     Active Substance: SODIUM CHLORIDE
     Dosage: 250 ML, QD (NS) (WITH DOCETAXEL)
     Route: 041
     Dates: start: 20250416, end: 20250416
  6. DOCETAXEL [Suspect]
     Active Substance: DOCETAXEL
     Indication: HER2 low breast cancer
     Dosage: 125 MG, QD
     Route: 041
     Dates: start: 20250416, end: 20250416
  7. DOCETAXEL [Suspect]
     Active Substance: DOCETAXEL
     Indication: Hormone receptor positive breast cancer
  8. DOCETAXEL [Suspect]
     Active Substance: DOCETAXEL
     Indication: Hormone receptor positive breast cancer
  9. Telpegfilgrastim [Concomitant]
     Route: 058
     Dates: start: 20250418

REACTIONS (3)
  - Neutrophil count decreased [Recovered/Resolved]
  - White blood cell count decreased [Recovered/Resolved]
  - Pyrexia [Recovering/Resolving]

NARRATIVE: CASE EVENT DATE: 20250421
